FAERS Safety Report 13273545 (Version 2)
Quarter: 2017Q3

REPORT INFORMATION
  Report Type: Report from Study
  Country: GB (occurrence: GB)
  Receive Date: 20170227
  Receipt Date: 20170925
  Transmission Date: 20171127
  Serious: Yes (Other)
  Sender: FDA-Public Use
  Company Number: GB-EMD SERONO-8143374

PATIENT
  Sex: Male

DRUGS (2)
  1. SAIZEN [Suspect]
     Active Substance: SOMATROPIN
     Indication: GROWTH HORMONE DEFICIENCY
     Route: 058
     Dates: start: 20150316, end: 201611
  2. SAIZEN [Suspect]
     Active Substance: SOMATROPIN
     Dosage: SAIZEN LIQUID 6 MG (5.83 MG/ML)
     Route: 058
     Dates: start: 20170501

REACTIONS (1)
  - Neoplasm progression [Recovered/Resolved]
